APPROVED DRUG PRODUCT: HYDRALAZINE HYDROCHLORIDE
Active Ingredient: HYDRALAZINE HYDROCHLORIDE
Strength: 100MG
Dosage Form/Route: TABLET;ORAL
Application: A209251 | Product #004
Applicant: RISING PHARMA HOLDINGS INC
Approved: Jul 9, 2018 | RLD: No | RS: No | Type: DISCN